FAERS Safety Report 22979435 (Version 2)
Quarter: 2023Q4

REPORT INFORMATION
  Report Type: Spontaneous
  Country: US (occurrence: US)
  Receive Date: 20230925
  Receipt Date: 20231005
  Transmission Date: 20240110
  Serious: No
  Sender: FDA-Public Use
  Company Number: US-PFIZER INC-202300302536

PATIENT
  Age: 37 Year
  Sex: Female
  Weight: 55.34 kg

DRUGS (1)
  1. DEPO-PROVERA [Suspect]
     Active Substance: MEDROXYPROGESTERONE ACETATE
     Indication: Contraception
     Dosage: UNK
     Dates: start: 2015, end: 202301

REACTIONS (4)
  - Depression [Recovered/Resolved]
  - Bone loss [Recovered/Resolved]
  - Arthralgia [Recovered/Resolved]
  - Joint noise [Recovered/Resolved]

NARRATIVE: CASE EVENT DATE: 20220101
